FAERS Safety Report 17214437 (Version 1)
Quarter: 2019Q4

REPORT INFORMATION
  Report Type: Report from Study
  Country: US (occurrence: US)
  Receive Date: 20191230
  Receipt Date: 20191230
  Transmission Date: 20200122
  Serious: No
  Sender: FDA-Public Use
  Company Number: US-IPSEN BIOPHARMACEUTICALS, INC.-2019-26080

PATIENT

DRUGS (2)
  1. BOTULINUM TOXIN TYPE A [Suspect]
     Active Substance: BOTULINUM TOXIN TYPE A
     Indication: SPASMODIC DYSPHONIA
     Dosage: THYROARYTENOID MUSCLES
     Route: 030
  2. BOTULINUM TOXIN TYPE A [Suspect]
     Active Substance: BOTULINUM TOXIN TYPE A
     Indication: OFF LABEL USE

REACTIONS (2)
  - Off label use [Unknown]
  - Adductor vocal cord weakness [Unknown]
